FAERS Safety Report 10424243 (Version 3)
Quarter: 2015Q1

REPORT INFORMATION
  Report Type: Report from Study
  Country: JP (occurrence: JP)
  Receive Date: 20140902
  Receipt Date: 20150223
  Transmission Date: 20150720
  Serious: Yes (Death, Other)
  Sender: FDA-Public Use
  Company Number: JP-PFIZER INC-2014242122

PATIENT
  Age: 80 Year
  Sex: Male
  Weight: 66 kg

DRUGS (16)
  1. AMLODIN [Concomitant]
     Active Substance: AMLODIPINE BESYLATE
     Dosage: 5 MG, 1X/DAY
     Route: 048
     Dates: start: 20130814, end: 20130906
  2. ADRENALINE [Concomitant]
     Active Substance: EPINEPHRINE
     Dosage: 1 MG, 1X/DAY
     Route: 042
     Dates: start: 20130928, end: 20130928
  3. NOVASTAN [Suspect]
     Active Substance: ARGATROBAN
     Dosage: 10 MG, UNK
     Route: 040
     Dates: start: 20130717, end: 20130717
  4. MINOPEN [Suspect]
     Active Substance: MINOCYCLINE HYDROCHLORIDE
     Dosage: 200 MG, 1X/DAY
     Route: 042
     Dates: start: 20130921, end: 20130927
  5. HEPARIN SODIUM. [Concomitant]
     Active Substance: HEPARIN SODIUM
     Dosage: UNK
     Route: 051
     Dates: start: 20130710
  6. ACECOL [Concomitant]
     Active Substance: TEMOCAPRIL HYDROCHLORIDE
     Dosage: 1 MG, 1X/DAY
     Route: 048
     Dates: start: 20130914, end: 20130920
  7. NOVASTAN [Suspect]
     Active Substance: ARGATROBAN
     Indication: ANTICOAGULANT THERAPY
     Dosage: 10 MG, UNK
     Route: 040
     Dates: start: 20130712, end: 20130712
  8. SULBACILLIN [Suspect]
     Active Substance: AMPICILLIN SODIUM\SULBACTAM SODIUM
     Dosage: 3 G, 1X/DAY
     Route: 042
     Dates: start: 20130711, end: 20130716
  9. HICALIQ RF [Suspect]
     Active Substance: CALCIUM GLUCONATE\DEXTROSE\MAGNESIUM SULFATE\POTASSIUM ACETATE\POTASSIUM PHOSPHATE, DIBASIC\ZINC SULFATE
     Dosage: 500 ML, 1X/DAY
     Route: 042
     Dates: start: 20130918, end: 20130928
  10. MUCODYNE [Concomitant]
     Active Substance: CARBOCYSTEINE
     Dosage: 1500 MG, 1X/DAY
     Route: 048
     Dates: start: 20130714, end: 20130726
  11. HOKUNALIN [Concomitant]
     Active Substance: TULOBUTEROL
     Dosage: 1 MG, 1X/DAY (TAPE)
     Route: 062
     Dates: start: 20130714, end: 20130806
  12. NOVASTAN [Suspect]
     Active Substance: ARGATROBAN
     Dosage: 25MG/HX5H (6 IN 1 WK)
     Route: 041
     Dates: start: 20130712, end: 20130712
  13. NOVASTAN [Suspect]
     Active Substance: ARGATROBAN
     Dosage: 25MG/HX4H (3 IN 1 WK)
     Route: 041
     Dates: start: 20130717, end: 20130926
  14. DOPAMIN [Suspect]
     Active Substance: DOPAMINE HYDROCHLORIDE
     Dosage: 120 MG, 1X/DAY
     Route: 042
     Dates: start: 20130711, end: 20130711
  15. BAYASPIRIN [Concomitant]
     Active Substance: ASPIRIN
     Dosage: 100 MG, 1X/DAY
     Route: 048
     Dates: start: 20130712, end: 20130714
  16. ESOMEPRAZOLE MAGNESIUM HYDRATE [Concomitant]
     Dosage: 20 MG, 1X/DAY
     Route: 048
     Dates: start: 20130712, end: 20130727

REACTIONS (2)
  - Liver disorder [Recovering/Resolving]
  - Respiratory failure [Fatal]

NARRATIVE: CASE EVENT DATE: 20130714
